FAERS Safety Report 10075414 (Version 1)
Quarter: 2014Q2

REPORT INFORMATION
  Report Type: Spontaneous
  Country: IT (occurrence: IT)
  Receive Date: 20140414
  Receipt Date: 20140414
  Transmission Date: 20141212
  Serious: Yes (Hospitalization, Other)
  Sender: FDA-Public Use
  Company Number: IT-DRREDDYS-GER/ITL/14/0039442

PATIENT
  Age: 34 Year
  Sex: Female

DRUGS (3)
  1. AMLODIPINE [Suspect]
     Indication: PRODUCT USED FOR UNKNOWN INDICATION
     Route: 048
     Dates: start: 20130925, end: 20130925
  2. RAMIPRIL [Suspect]
     Indication: PRODUCT USED FOR UNKNOWN INDICATION
     Route: 048
     Dates: start: 20130925, end: 20130925
  3. DELTACORTENE [Suspect]
     Indication: PRODUCT USED FOR UNKNOWN INDICATION
     Route: 048
     Dates: start: 20130925, end: 20130925

REACTIONS (3)
  - Hypotension [Recovered/Resolved]
  - Intentional self-injury [Unknown]
  - Intentional overdose [Unknown]
